FAERS Safety Report 11339933 (Version 1)
Quarter: 2015Q3

REPORT INFORMATION
  Report Type: Report from Study
  Country: CA (occurrence: CA)
  Receive Date: 20150805
  Receipt Date: 20150805
  Transmission Date: 20151125
  Serious: Yes (Life-Threatening)
  Sender: FDA-Public Use
  Company Number: CA-PFIZER INC-2015250285

PATIENT
  Age: 50 Month
  Sex: Male

DRUGS (4)
  1. PHENOBARBITAL. [Suspect]
     Active Substance: PHENOBARBITAL
     Indication: LENNOX-GASTAUT SYNDROME
     Dosage: UNK
  2. ETHOSUXIMIDE. [Concomitant]
     Active Substance: ETHOSUXIMIDE
     Dosage: UNK
  3. PHENYTOIN. [Suspect]
     Active Substance: PHENYTOIN
     Indication: LENNOX-GASTAUT SYNDROME
     Dosage: UNK
  4. CARBAMAZEPINE. [Suspect]
     Active Substance: CARBAMAZEPINE
     Indication: LENNOX-GASTAUT SYNDROME
     Dosage: UNK

REACTIONS (5)
  - Disseminated intravascular coagulation [Recovered/Resolved]
  - Lymphadenopathy [Recovered/Resolved]
  - Splenomegaly [Recovered/Resolved]
  - Dermatitis allergic [Recovered/Resolved]
  - Dermatitis exfoliative [Recovered/Resolved]
